FAERS Safety Report 9618724 (Version 1)
Quarter: 2013Q4

REPORT INFORMATION
  Report Type: Spontaneous
  Country: GB (occurrence: GB)
  Receive Date: 20131014
  Receipt Date: 20131014
  Transmission Date: 20140711
  Serious: Yes (Life-Threatening)
  Sender: FDA-Public Use
  Company Number: GB-ACCORD-019767

PATIENT
  Age: 61 Year
  Sex: Female
  Weight: 56.8 kg

DRUGS (3)
  1. PYRIDOXINE [Concomitant]
  2. DOCETAXEL [Suspect]
     Indication: BREAST CANCER
     Route: 042
     Dates: start: 20130822, end: 20130822
  3. RIFINAH [Interacting]
     Indication: TUBERCULOSIS

REACTIONS (2)
  - Hepatitis acute [Recovering/Resolving]
  - Drug interaction [Unknown]
